FAERS Safety Report 11927291 (Version 1)
Quarter: 2016Q1

REPORT INFORMATION
  Report Type: Spontaneous
  Country: US (occurrence: None)
  Receive Date: 20160115
  Receipt Date: 20160115
  Transmission Date: 20160526
  Serious: Yes (Other)
  Sender: FDA-Public Use
  Company Number: None

PATIENT
  Age: 44 Year
  Sex: Female
  Weight: 72.58 kg

DRUGS (6)
  1. AMITIZA [Concomitant]
     Active Substance: LUBIPROSTONE
  2. CYMBALTA [Concomitant]
     Active Substance: DULOXETINE HYDROCHLORIDE
  3. COPAXONE [Suspect]
     Active Substance: GLATIRAMER ACETATE
     Indication: MULTIPLE SCLEROSIS
     Dosage: 3 TIMES PER WEEK   GIVEN INTO/UNDER THE SKIN
     Route: 058
     Dates: start: 20150212, end: 20150216
  4. SINGULAIR [Concomitant]
     Active Substance: MONTELUKAST SODIUM
  5. RITALIN [Concomitant]
     Active Substance: METHYLPHENIDATE HYDROCHLORIDE
  6. VITAMIN D [Concomitant]
     Active Substance: CHOLECALCIFEROL

REACTIONS (8)
  - Insomnia [None]
  - Headache [None]
  - Bladder disorder [None]
  - Heart rate increased [None]
  - Vestibular disorder [None]
  - Impaired work ability [None]
  - Tremor [None]
  - Malaise [None]

NARRATIVE: CASE EVENT DATE: 20150210
